FAERS Safety Report 14843712 (Version 2)
Quarter: 2018Q3

REPORT INFORMATION
  Report Type: Spontaneous
  Country: US (occurrence: US)
  Receive Date: 20180503
  Receipt Date: 20180801
  Transmission Date: 20181010
  Serious: No
  Sender: FDA-Public Use
  Company Number: US-009507513-1804USA008902

PATIENT
  Age: 26 Year
  Sex: Female

DRUGS (2)
  1. REMERON [Suspect]
     Active Substance: MIRTAZAPINE
     Indication: PROGRESSIVE MULTIFOCAL LEUKOENCEPHALOPATHY
     Dosage: 15 MG, DAILY.
     Route: 048
  2. MEFLOQUINE [Concomitant]
     Active Substance: MEFLOQUINE
     Indication: PROGRESSIVE MULTIFOCAL LEUKOENCEPHALOPATHY
     Dosage: LOADING DOSE FOLLOWED BY 250 MG WEEKLY
     Route: 048

REACTIONS (1)
  - Product use in unapproved indication [Unknown]
